FAERS Safety Report 8516134-6 (Version None)
Quarter: 2012Q3

REPORT INFORMATION
  Report Type: 
  Country: None (occurrence: None)
  Receive Date: 20120717
  Receipt Date: 20120504
  Transmission Date: 20120928
  Serious: No
  Sender: FDA-Public Use
  Company Number: US-NOVEN-12US004601

PATIENT

DRUGS (1)
  1. FENTANYL [Suspect]
     Indication: RHEUMATOID ARTHRITIS
     Dosage: 75 UG/HR, Q 3DAYS
     Route: 062

REACTIONS (6)
  - DRUG WITHDRAWAL SYNDROME [None]
  - COLD SWEAT [None]
  - MUSCULOSKELETAL STIFFNESS [None]
  - PRODUCT QUALITY ISSUE [None]
  - TREMOR [None]
  - IRRITABILITY [None]
